FAERS Safety Report 15260187 (Version 4)
Quarter: 2018Q3

REPORT INFORMATION
  Report Type: Spontaneous
  Country: US (occurrence: US)
  Receive Date: 20180809
  Receipt Date: 20180918
  Transmission Date: 20181010
  Serious: Yes (Other)
  Sender: FDA-Public Use
  Company Number: US-PFIZER INC-2018317247

PATIENT
  Age: 42 Year
  Sex: Female
  Weight: 72 kg

DRUGS (4)
  1. IBRANCE [Suspect]
     Active Substance: PALBOCICLIB
     Indication: BREAST CANCER METASTATIC
     Dosage: 125 MG, CYCLIC [125 MG CAPSULES FOR 21 DAYS]
     Route: 048
     Dates: start: 201803, end: 2018
  2. IBRANCE [Suspect]
     Active Substance: PALBOCICLIB
     Dosage: 125 MG, 1X/DAY
     Route: 048
     Dates: start: 2018
  3. ZOMETA [Concomitant]
     Active Substance: ZOLEDRONIC ACID
     Indication: OSTEOPOROSIS
     Dosage: 4 MG EVERY 3 MONTHS
  4. FASLODEX [Concomitant]
     Active Substance: FULVESTRANT
     Indication: OSTEOPOROSIS
     Dosage: UNK, MONTHLY, 500 ONCE A MONTH IN THE OFFICE
     Route: 048

REACTIONS (8)
  - Weight decreased [Unknown]
  - Confusional state [Unknown]
  - Emotional disorder [Unknown]
  - Neutropenia [Recovered/Resolved]
  - Anxiety [Unknown]
  - Nervousness [Unknown]
  - Psychiatric symptom [Unknown]
  - Sleep disorder [Unknown]

NARRATIVE: CASE EVENT DATE: 201803
